FAERS Safety Report 5315084-6 (Version None)
Quarter: 2007Q2

REPORT INFORMATION
  Report Type: 
  Country: None (occurrence: None)
  Receive Date: 20070502
  Receipt Date: 20070423
  Transmission Date: 20071010
  Serious: Yes (Life-Threatening, Hospitalization, Other)
  Sender: FDA-Public Use
  Company Number: DE-PFIZER INC-2007007847

PATIENT
  Sex: Female

DRUGS (11)
  1. REVATIO [Suspect]
     Indication: PULMONARY HYPERTENSION
     Route: 048
  2. HEPARIN [Concomitant]
     Route: 058
  3. DILZEM [Concomitant]
     Route: 048
  4. SPIRIVA [Concomitant]
     Route: 055
  5. SALBUTAMOL [Concomitant]
     Route: 055
  6. SYMBICORT [Concomitant]
     Route: 055
  7. ACC [Concomitant]
     Route: 048
  8. ARANESP [Concomitant]
  9. FERRLECIT [Concomitant]
  10. AMPHO-MORONAL [Concomitant]
     Route: 048
  11. ANTI-PHOSPHAT [Concomitant]
     Route: 048

REACTIONS (5)
  - ABDOMINAL SYMPTOM [None]
  - ANAEMIA [None]
  - FAECALOMA [None]
  - GASTROINTESTINAL HAEMORRHAGE [None]
  - OESOPHAGEAL ULCER [None]
